FAERS Safety Report 15680056 (Version 1)
Quarter: 2018Q4

REPORT INFORMATION
  Report Type: Report from Study
  Country: FR (occurrence: AT)
  Receive Date: 20181203
  Receipt Date: 20181203
  Transmission Date: 20190205
  Serious: Yes (Hospitalization)
  Sender: FDA-Public Use
  Company Number: FR-ALK-ABELLO A/S-2018AA004074

PATIENT

DRUGS (4)
  1. ACARIZAX [Suspect]
     Active Substance: DERMATOPHAGOIDES FARINAE\DERMATOPHAGOIDES PTERONYSSINUS
     Indication: MITE ALLERGY
     Dosage: UNK
     Route: 060
     Dates: start: 20180929, end: 20181112
  2. VENTOLINE                          /00139501/ [Concomitant]
     Active Substance: ALBUTEROL
     Indication: ASTHMA
     Dosage: UNK
     Dates: start: 20180711
  3. MULTICROM [Concomitant]
     Active Substance: CROMOLYN SODIUM
     Indication: CONJUNCTIVITIS
     Dosage: 4 DOSES, QD
     Dates: start: 20180711
  4. RINO-CLENIL [Concomitant]
     Indication: RHINITIS
     Dosage: 4 DOSES, QD
     Dates: start: 20180711

REACTIONS (5)
  - Paraesthesia oral [Not Recovered/Not Resolved]
  - Oral discomfort [Not Recovered/Not Resolved]
  - Tongue oedema [Not Recovered/Not Resolved]
  - Face oedema [Not Recovered/Not Resolved]
  - Mouth swelling [Not Recovered/Not Resolved]

NARRATIVE: CASE EVENT DATE: 20180929
